FAERS Safety Report 5126049-1 (Version None)
Quarter: 2006Q4

REPORT INFORMATION
  Report Type: 
  Country: None (occurrence: None)
  Receive Date: 20061012
  Receipt Date: 20060529
  Transmission Date: 20070319
  Serious: Yes (Death, Hospitalization)
  Sender: FDA-Public Use
  Company Number: JP-ROCHE-450067

PATIENT
  Age: 70 Year
  Sex: Female
  Weight: 51 kg

DRUGS (2)
  1. PEGASYS [Suspect]
     Dosage: DRUG REPORTED AS PEGASYS 90.
     Route: 058
     Dates: start: 20051203, end: 20060511
  2. TAMIFLU [Concomitant]
     Route: 048
     Dates: start: 20051215, end: 20051217

REACTIONS (7)
  - BLOOD GLUCOSE INCREASED [None]
  - CEREBRAL HAEMORRHAGE [None]
  - CONDITION AGGRAVATED [None]
  - GENERAL PHYSICAL HEALTH DETERIORATION [None]
  - HEPATITIS [None]
  - PLATELET COUNT DECREASED [None]
  - SEPSIS [None]
